FAERS Safety Report 6887150-5 (Version None)
Quarter: 2010Q3

REPORT INFORMATION
  Report Type: 
  Country: None (occurrence: None)
  Receive Date: 20100730
  Receipt Date: 20100723
  Transmission Date: 20110219
  Serious: Yes (Other)
  Sender: FDA-Public Use
  Company Number: AT-PFIZER INC-2010092920

PATIENT
  Sex: Female

DRUGS (3)
  1. DEPOCON - FERTIGSPRITZE [Suspect]
     Indication: ENDOMETRIOSIS
     Dosage: UNK
  2. SAYANA [Suspect]
     Indication: ENDOMETRIOSIS
     Dosage: UNK
  3. DANOKRIN [Concomitant]
     Indication: ENDOMETRIOSIS

REACTIONS (1)
  - IRON DEFICIENCY [None]
